FAERS Safety Report 4690606-7 (Version None)
Quarter: 2005Q2

REPORT INFORMATION
  Report Type: 
  Country: None (occurrence: None)
  Receive Date: 20050615
  Receipt Date: 20050608
  Transmission Date: 20051028
  Serious: Yes (Hospitalization)
  Sender: FDA-Public Use
  Company Number: US-BRISTOL-MYERS SQUIBB COMPANY-12997466

PATIENT
  Age: 63 Year
  Sex: Female
  Weight: 326 kg

DRUGS (5)
  1. GLUCOVANCE [Suspect]
     Indication: DIABETES MELLITUS
     Dosage: 1 DOSAGE FORM = 5MG/500MG
  2. LASIX [Concomitant]
  3. NORVASC [Concomitant]
  4. KLOR-CON M [Concomitant]
  5. AMARYL [Concomitant]

REACTIONS (2)
  - CELLULITIS [None]
  - RENAL FAILURE [None]
